FAERS Safety Report 17675031 (Version 1)
Quarter: 2020Q2

REPORT INFORMATION
  Report Type: Spontaneous
  Country: ES (occurrence: ES)
  Receive Date: 20200416
  Receipt Date: 20200416
  Transmission Date: 20200714
  Serious: Yes (Other)
  Sender: FDA-Public Use
  Company Number: ES-TEVA-2020-ES-1224785

PATIENT
  Age: 51 Year
  Sex: Female

DRUGS (2)
  1. DASATINIB. [Suspect]
     Active Substance: DASATINIB
     Indication: CHRONIC MYELOID LEUKAEMIA
     Route: 065
  2. IMATINIB. [Suspect]
     Active Substance: IMATINIB MESYLATE
     Indication: CHRONIC MYELOID LEUKAEMIA
     Route: 065

REACTIONS (5)
  - Pericardial effusion [Recovered/Resolved]
  - Right ventricular failure [Recovered/Resolved]
  - Drug resistance [Unknown]
  - Oedema peripheral [Recovered/Resolved]
  - Pulmonary hypertension [Recovered/Resolved]
